FAERS Safety Report 10401249 (Version 2)
Quarter: 2014Q3

REPORT INFORMATION
  Report Type: Report from Study
  Country: US (occurrence: US)
  Receive Date: 20140822
  Receipt Date: 20140911
  Transmission Date: 20150326
  Serious: Yes (Other)
  Sender: FDA-Public Use
  Company Number: US-BIOGENIDEC-2014BI083203

PATIENT
  Age: 59 Year
  Sex: Female
  Weight: 59 kg

DRUGS (33)
  1. SYNTHROID [Concomitant]
     Active Substance: LEVOTHYROXINE SODIUM
     Route: 048
  2. BENTYL [Concomitant]
     Active Substance: DICYCLOMINE HYDROCHLORIDE
     Route: 048
  3. AMITIZA [Concomitant]
     Active Substance: LUBIPROSTONE
     Route: 048
  4. GILENYA [Concomitant]
     Active Substance: FINGOLIMOD HYDROCHLORIDE
  5. AVONEX [Suspect]
     Active Substance: INTERFERON BETA-1A
     Indication: MULTIPLE SCLEROSIS
     Route: 030
     Dates: start: 20080722, end: 20131201
  6. PRISTIQ EXTENDED RELEASE [Concomitant]
     Active Substance: DESVENLAFAXINE SUCCINATE
     Route: 048
  7. ROBAXIN [Concomitant]
     Active Substance: METHOCARBAMOL
     Indication: MUSCULOSKELETAL PAIN
     Route: 048
  8. NEURONTIN [Concomitant]
     Active Substance: GABAPENTIN
     Indication: MULTIPLE SCLEROSIS
     Route: 048
  9. ALDACTONE [Concomitant]
     Active Substance: SPIRONOLACTONE
     Route: 048
  10. RASAGILINE [Concomitant]
     Active Substance: RASAGILINE
  11. AVONEX [Suspect]
     Active Substance: INTERFERON BETA-1A
     Indication: MULTIPLE SCLEROSIS
     Route: 030
  12. LINZESS [Concomitant]
     Active Substance: LINACLOTIDE
     Route: 048
  13. MSIR [Concomitant]
     Active Substance: MORPHINE SULFATE
     Indication: PAIN
     Route: 048
  14. ASPIRIN. [Concomitant]
     Active Substance: ASPIRIN
     Route: 048
  15. BETASERON [Concomitant]
     Active Substance: INTERFERON BETA-1B
  16. COPAXONE [Concomitant]
     Active Substance: GLATIRAMER ACETATE
  17. TYSABRI [Concomitant]
     Active Substance: NATALIZUMAB
  18. OMEGA-3 ACIDS [Concomitant]
     Active Substance: OMEGA-3 FATTY ACIDS
     Route: 048
  19. NEXIUM [Concomitant]
     Active Substance: ESOMEPRAZOLE MAGNESIUM
     Route: 048
  20. LEVSIN [Concomitant]
     Active Substance: HYOSCYAMINE SULFATE
     Route: 048
  21. REBIF [Concomitant]
     Active Substance: INTERFERON BETA-1A
  22. METAMUCIL [Concomitant]
     Active Substance: PLANTAGO SEED
     Route: 048
  23. TOPICORT [Concomitant]
     Active Substance: DESOXIMETASONE
     Route: 061
  24. FLEXERIL [Concomitant]
     Active Substance: CYCLOBENZAPRINE HYDROCHLORIDE
     Route: 048
  25. MS CONTIN [Concomitant]
     Active Substance: MORPHINE SULFATE
     Route: 048
  26. ADALAT [Concomitant]
     Active Substance: NIFEDIPINE
     Route: 048
  27. ASTELIN [Concomitant]
     Active Substance: AZELASTINE HYDROCHLORIDE
     Route: 045
  28. BUMEX [Concomitant]
     Active Substance: BUMETANIDE
     Indication: OEDEMA
     Route: 048
  29. PROVIGIL [Concomitant]
     Active Substance: MODAFINIL
     Route: 048
  30. VITAMIN D [Concomitant]
     Active Substance: CHOLECALCIFEROL
     Route: 048
  31. MYCOLOG [Concomitant]
     Active Substance: GRAMICIDIN\NEOMYCIN SULFATE\NYSTATIN\TRIAMCINOLONE ACETONIDE
     Route: 061
  32. AMBIEN [Concomitant]
     Active Substance: ZOLPIDEM TARTRATE
     Indication: INSOMNIA
     Route: 048
  33. TOPAMAX [Concomitant]
     Active Substance: TOPIRAMATE
     Route: 048

REACTIONS (5)
  - Deep vein thrombosis [Unknown]
  - Drug intolerance [Unknown]
  - Malaise [Unknown]
  - Transaminases increased [Unknown]
  - Amnesia [Unknown]

NARRATIVE: CASE EVENT DATE: 20101122
